FAERS Safety Report 17543239 (Version 2)
Quarter: 2020Q1

REPORT INFORMATION
  Report Type: Report from Study
  Country: CA (occurrence: CA)
  Receive Date: 20200316
  Receipt Date: 20200316
  Transmission Date: 20200409
  Serious: Yes (Other)
  Sender: FDA-Public Use
  Company Number: CA-ORION CORPORATION ORION PHARMA-TREX2020-1385

PATIENT
  Age: 60 Year
  Sex: Female

DRUGS (21)
  1. ACTEMRA [Suspect]
     Active Substance: TOCILIZUMAB
     Indication: RHEUMATOID ARTHRITIS
     Route: 042
  2. ACTEMRA [Suspect]
     Active Substance: TOCILIZUMAB
     Route: 017
  3. RITALIN [Concomitant]
     Active Substance: METHYLPHENIDATE HYDROCHLORIDE
     Route: 065
  4. VALSARTAN. [Concomitant]
     Active Substance: VALSARTAN
     Route: 065
  5. METHYLPREDNISOLONE. [Concomitant]
     Active Substance: METHYLPREDNISOLONE
     Indication: PREMEDICATION
     Route: 042
  6. METHOTREXATE (TRADE NAME UNKNOWN) [Suspect]
     Active Substance: METHOTREXATE
     Indication: PRODUCT USED FOR UNKNOWN INDICATION
     Route: 065
  7. RITUXIMAB. [Suspect]
     Active Substance: RITUXIMAB
     Route: 017
  8. ALENDRONATE SODIUM. [Concomitant]
     Active Substance: ALENDRONATE SODIUM
     Route: 065
  9. PROZAC [Concomitant]
     Active Substance: FLUOXETINE HYDROCHLORIDE
     Route: 065
  10. PRAVACHOL [Concomitant]
     Active Substance: PRAVASTATIN SODIUM
     Route: 065
  11. ACETAMINOPHEN. [Concomitant]
     Active Substance: ACETAMINOPHEN
     Route: 065
  12. DIPHENHYDRAMINE HYDROCHLORIDE. [Concomitant]
     Active Substance: DIPHENHYDRAMINE HYDROCHLORIDE
     Indication: PREMEDICATION
     Route: 048
  13. SYNTHROID [Concomitant]
     Active Substance: LEVOTHYROXINE SODIUM
     Route: 065
  14. RITUXIMAB. [Suspect]
     Active Substance: RITUXIMAB
     Indication: RHEUMATOID ARTHRITIS
     Dosage: CYCLIC
     Route: 042
  15. ACTEMRA [Suspect]
     Active Substance: TOCILIZUMAB
     Route: 042
  16. HYDROXYCHLOROQUINE SULFATE. [Concomitant]
     Active Substance: HYDROXYCHLOROQUINE SULFATE
     Route: 065
  17. PREDNISONE. [Concomitant]
     Active Substance: PREDNISONE
     Route: 065
  18. RISEDRONATE SODIUM. [Concomitant]
     Active Substance: RISEDRONATE SODIUM
     Route: 065
  19. ROSUVASTATIN CALCIUM. [Concomitant]
     Active Substance: ROSUVASTATIN CALCIUM
     Route: 065
  20. NAPROXEN. [Concomitant]
     Active Substance: NAPROXEN
     Route: 065
  21. PREDNISONE. [Concomitant]
     Active Substance: PREDNISONE
     Route: 065

REACTIONS (19)
  - Bronchitis [Not Recovered/Not Resolved]
  - Pneumonia [Not Recovered/Not Resolved]
  - Sinusitis [Not Recovered/Not Resolved]
  - Rheumatoid arthritis [Not Recovered/Not Resolved]
  - Cough [Not Recovered/Not Resolved]
  - Headache [Not Recovered/Not Resolved]
  - Drug ineffective [Not Recovered/Not Resolved]
  - Laryngitis [Not Recovered/Not Resolved]
  - Nasal congestion [Not Recovered/Not Resolved]
  - Stomatitis [Not Recovered/Not Resolved]
  - Blood pressure increased [Not Recovered/Not Resolved]
  - Vision blurred [Not Recovered/Not Resolved]
  - Epistaxis [Not Recovered/Not Resolved]
  - Nasopharyngitis [Not Recovered/Not Resolved]
  - Blood pressure systolic increased [Not Recovered/Not Resolved]
  - Migraine [Not Recovered/Not Resolved]
  - Dyspnoea exertional [Not Recovered/Not Resolved]
  - Oral herpes [Not Recovered/Not Resolved]
  - Sinus congestion [Not Recovered/Not Resolved]
